FAERS Safety Report 16390978 (Version 1)
Quarter: 2019Q2

REPORT INFORMATION
  Report Type: Spontaneous
  Country: US (occurrence: US)
  Receive Date: 20190604
  Receipt Date: 20190604
  Transmission Date: 20190711
  Serious: No
  Sender: FDA-Public Use
  Company Number: US-GALDERMA-US18031443

PATIENT
  Age: 23 Year
  Sex: Female

DRUGS (4)
  1. PROACTIV MD DAILY OIL CONTROL SPF 30 [Suspect]
     Active Substance: AVOBENZONE\OCTISALATE\OCTOCRYLENE
     Indication: ACNE
     Route: 061
     Dates: start: 20180518, end: 20180703
  2. PROACTIV MD ADAPALENE ACNE TREATMENT [Suspect]
     Active Substance: ADAPALENE
     Indication: ACNE
     Dosage: 0.1%
     Route: 061
     Dates: start: 20180518, end: 20180703
  3. PROACTIV ACNE CLEARING BODY SPRAY [Concomitant]
     Indication: ACNE
     Route: 061
     Dates: start: 20180518, end: 20180703
  4. PROACTIV MD DEEP CLEANSING FACE WASH [Concomitant]
     Active Substance: COSMETICS
     Indication: ACNE
     Route: 061
     Dates: start: 20180518, end: 20180703

REACTIONS (3)
  - Skin burning sensation [Recovering/Resolving]
  - Dry skin [Recovering/Resolving]
  - Skin discomfort [Recovering/Resolving]

NARRATIVE: CASE EVENT DATE: 201805
